FAERS Safety Report 10092926 (Version 1)
Quarter: 2014Q2

REPORT INFORMATION
  Report Type: Spontaneous
  Country: US (occurrence: US)
  Receive Date: 20140421
  Receipt Date: 20140421
  Transmission Date: 20141212
  Serious: No
  Sender: FDA-Public Use
  Company Number: US-SA-2013SA095979

PATIENT
  Age: 67 Year
  Sex: Female

DRUGS (1)
  1. ALLEGRA [Suspect]
     Indication: SEASONAL ALLERGY
     Dosage: THERAPY STARTED SINCE ABOUT A YEAR OR A YEAR AND A HALF
     Route: 048

REACTIONS (4)
  - Constipation [Not Recovered/Not Resolved]
  - Blood potassium increased [Not Recovered/Not Resolved]
  - Blood creatine increased [Not Recovered/Not Resolved]
  - Blood urea increased [Not Recovered/Not Resolved]
